FAERS Safety Report 23642731 (Version 6)
Quarter: 2024Q4

REPORT INFORMATION
  Report Type: Spontaneous
  Country: JP (occurrence: JP)
  Receive Date: 20240318
  Receipt Date: 20241030
  Transmission Date: 20250115
  Serious: Yes (Death, Life-Threatening, Other)
  Sender: AMGEN
  Company Number: JP-AMGEN-JPNSP2024031496

PATIENT
  Age: 61 Year
  Sex: Female
  Weight: 48 kg

DRUGS (8)
  1. BLINCYTO [Suspect]
     Active Substance: BLINATUMOMAB
     Indication: B precursor type acute leukaemia
     Dosage: 9 MICROGRAM, QD DRIP INFUSION
     Route: 042
     Dates: start: 20240207, end: 20240212
  2. BLINCYTO [Suspect]
     Active Substance: BLINATUMOMAB
     Dosage: 9 MICROGRAM, QD DRIP INFUSION
     Route: 042
     Dates: start: 20240217, end: 20240226
  3. FILGRASTIM [Suspect]
     Active Substance: FILGRASTIM
     Indication: White blood cell count decreased
     Dosage: 300 MICROGRAM, QD
     Route: 042
     Dates: start: 20240210, end: 20240303
  4. WHOLE BLOOD [Concomitant]
     Active Substance: WHOLE BLOOD
     Dosage: UNK, (TYPE/AMOUNT: PC: 10 UNITS, RBC: 2 UNITS)
     Dates: start: 20240207, end: 20240324
  5. WATER FOR INJECTION [Concomitant]
     Active Substance: WATER
     Dosage: UNK. 3.3 ML/H
  6. DEXAMETHASONE [Concomitant]
     Active Substance: DEXAMETHASONE
     Indication: Dysstasia
     Dosage: 6.6 MILLIGRAM, BID
     Dates: start: 20240207, end: 202402
  7. DEXAMETHASONE [Concomitant]
     Active Substance: DEXAMETHASONE
     Dosage: 13.2 MILLIGRAM, QD
     Dates: start: 20240208, end: 20240212
  8. DEXAMETHASONE [Concomitant]
     Active Substance: DEXAMETHASONE
     Dosage: 13.2 MILLIGRAM, BID
     Dates: start: 20240213, end: 20240215

REACTIONS (18)
  - B precursor type acute leukaemia [Fatal]
  - Pancytopenia [Not Recovered/Not Resolved]
  - Confusional state [Recovering/Resolving]
  - Cytokine release syndrome [Not Recovered/Not Resolved]
  - Aphasia [Recovering/Resolving]
  - Myelosuppression [Fatal]
  - Activated partial thromboplastin time shortened [Unknown]
  - Aspartate aminotransferase decreased [Unknown]
  - Blood albumin decreased [Unknown]
  - Blood chloride decreased [Unknown]
  - Blood creatine phosphokinase decreased [Unknown]
  - Blood urea increased [Unknown]
  - Blood lactate dehydrogenase increased [Unknown]
  - Gamma-glutamyltransferase increased [Unknown]
  - Dysstasia [Recovered/Resolved]
  - Blood glucose increased [Recovered/Resolved]
  - Blood potassium decreased [Recovered/Resolved]
  - Blood potassium increased [Recovered/Resolved]

NARRATIVE: CASE EVENT DATE: 20240209
